FAERS Safety Report 23426572 (Version 1)
Quarter: 2024Q1

REPORT INFORMATION
  Report Type: Spontaneous
  Country: RU (occurrence: RU)
  Receive Date: 20240122
  Receipt Date: 20240122
  Transmission Date: 20240410
  Serious: Yes (Other)
  Sender: FDA-Public Use
  Company Number: RU-AMAROX PHARMA-HET2024RU00113

PATIENT
  Age: 35 Year
  Sex: Female
  Weight: 52 kg

DRUGS (1)
  1. LEVETIRACETAM [Suspect]
     Active Substance: LEVETIRACETAM
     Indication: Partial seizures
     Dosage: 1.0 IN THE MORNING, 1.5 IN THE EVENING (2 DAYS)
     Route: 048
     Dates: start: 20230628, end: 20230728

REACTIONS (1)
  - Partial seizures [Recovering/Resolving]

NARRATIVE: CASE EVENT DATE: 20230720
